FAERS Safety Report 5838703-4 (Version None)
Quarter: 2008Q3

REPORT INFORMATION
  Report Type: 
  Country: None (occurrence: None)
  Receive Date: 20080808
  Receipt Date: 20080805
  Transmission Date: 20090109
  Serious: Yes (Life-Threatening)
  Sender: FDA-Public Use
  Company Number: B0527577A

PATIENT
  Age: 33 Year
  Sex: Male

DRUGS (3)
  1. PAXIL [Suspect]
     Indication: DEPRESSION
     Dosage: 10MG PER DAY
     Route: 048
     Dates: start: 20080619, end: 20080622
  2. DOGMATYL [Concomitant]
     Indication: DEPRESSION
     Route: 065
  3. CHINESE MEDICINE [Concomitant]
     Indication: ANXIETY
     Route: 048

REACTIONS (1)
  - SUICIDAL IDEATION [None]
